FAERS Safety Report 11110864 (Version 2)
Quarter: 2015Q2

REPORT INFORMATION
  Report Type: Spontaneous
  Country: US (occurrence: US)
  Receive Date: 20150513
  Receipt Date: 20150622
  Transmission Date: 20150821
  Serious: Yes (Hospitalization)
  Sender: FDA-Public Use
  Company Number: US-BAYER-2015-223914

PATIENT
  Age: 30 Year
  Sex: Female
  Weight: 72.56 kg

DRUGS (3)
  1. SINGULAIR [Concomitant]
     Active Substance: MONTELUKAST SODIUM
     Indication: ASTHMA
     Dosage: UNK
     Dates: start: 2004
  2. MIRENA [Suspect]
     Active Substance: LEVONORGESTREL
     Indication: CONTRACEPTION
     Dosage: 20 MCG/24HR, CONT
     Route: 015
     Dates: start: 20080916, end: 20140205
  3. ALBUTEROL. [Concomitant]
     Active Substance: ALBUTEROL

REACTIONS (8)
  - Device use error [None]
  - Injury [None]
  - Pain [None]
  - Depression [None]
  - Uterine perforation [None]
  - Emotional distress [None]
  - Off label use of device [None]
  - Anxiety [None]

NARRATIVE: CASE EVENT DATE: 20131022
